FAERS Safety Report 5650783-8 (Version None)
Quarter: 2008Q1

REPORT INFORMATION
  Report Type: 
  Country: None (occurrence: None)
  Receive Date: 20080305
  Receipt Date: 20080223
  Transmission Date: 20080703
  Serious: Yes (Disabling, Other)
  Sender: FDA-Public Use
  Company Number: CA-ROCHE-546168

PATIENT
  Age: 16 Year
  Sex: Male

DRUGS (2)
  1. ACCUTANE [Suspect]
     Indication: ACNE
     Route: 048
     Dates: start: 20060101, end: 20060101
  2. TETRACYCLINE [Concomitant]
     Indication: ACNE
     Route: 048
     Dates: end: 20060101

REACTIONS (18)
  - ACNE [None]
  - BACK PAIN [None]
  - CHROMATURIA [None]
  - CYST [None]
  - DEPRESSION [None]
  - DIABETES MELLITUS [None]
  - DRUG INEFFECTIVE [None]
  - FAECES DISCOLOURED [None]
  - HEADACHE [None]
  - HYPERHIDROSIS [None]
  - IMMUNE SYSTEM DISORDER [None]
  - PHARYNGITIS [None]
  - POLLAKIURIA [None]
  - POST-TRAUMATIC STRESS DISORDER [None]
  - RASH MACULAR [None]
  - URINARY INCONTINENCE [None]
  - URINARY TRACT INFECTION [None]
  - WEIGHT DECREASED [None]
